FAERS Safety Report 8386515-2 (Version None)
Quarter: 2012Q2

REPORT INFORMATION
  Report Type: 
  Country: None (occurrence: None)
  Receive Date: 20120525
  Receipt Date: 20120516
  Transmission Date: 20120825
  Serious: Yes (Other)
  Sender: FDA-Public Use
  Company Number: CA-JNJFOC-20120514361

PATIENT
  Sex: Female
  Weight: 90 kg

DRUGS (3)
  1. ANTI HYPERTENSIVE [Concomitant]
     Indication: HYPERTENSION
     Route: 065
  2. REMICADE [Suspect]
     Indication: CROHN'S DISEASE
     Dosage: INDUCTION PHASE
     Route: 042
     Dates: start: 20120502
  3. IMURAN [Concomitant]
     Route: 065

REACTIONS (1)
  - LUPUS-LIKE SYNDROME [None]
